FAERS Safety Report 12309177 (Version 2)
Quarter: 2016Q2

REPORT INFORMATION
  Report Type: Report from Study
  Country: US (occurrence: US)
  Receive Date: 20160427
  Receipt Date: 20160517
  Transmission Date: 20160815
  Serious: No
  Sender: FDA-Public Use
  Company Number: US-AMGEN-USASL2016050194

PATIENT
  Age: 63 Year
  Sex: Female

DRUGS (1)
  1. ENBREL [Suspect]
     Active Substance: ETANERCEPT
     Indication: PSORIASIS
     Dosage: 50 MG, WEEKLY
     Route: 065
     Dates: start: 20160309

REACTIONS (7)
  - Injection site pain [Unknown]
  - No therapeutic response [Unknown]
  - Skin odour abnormal [Unknown]
  - Drug dose omission [Unknown]
  - Pain [Unknown]
  - Pain in extremity [Unknown]
  - Device issue [Unknown]

NARRATIVE: CASE EVENT DATE: 2016
